FAERS Safety Report 6193380-0 (Version None)
Quarter: 2009Q2

REPORT INFORMATION
  Report Type: 
  Country: None (occurrence: None)
  Receive Date: 20090514
  Receipt Date: 20090506
  Transmission Date: 20091009
  Serious: Yes (Hospitalization, Other)
  Sender: FDA-Public Use
  Company Number: 2009SP001031

PATIENT
  Age: 54 Year
  Sex: Male
  Weight: 63.2 kg

DRUGS (6)
  1. LUNESTA [Suspect]
     Indication: SLEEP DISORDER
     Dosage: 3 MG; HS; ORAL
     Route: 048
     Dates: start: 20060701, end: 20090410
  2. ANDROGEL [Suspect]
     Indication: BLOOD TESTOSTERONE DECREASED
     Dosage: 5 GM; QD
     Dates: start: 20081201, end: 20090201
  3. LIPITOR [Concomitant]
  4. BENICAR [Concomitant]
  5. VIAGRA [Concomitant]
  6. SYNTHROID [Concomitant]

REACTIONS (21)
  - ABDOMINAL PAIN UPPER [None]
  - ALOPECIA [None]
  - BACK PAIN [None]
  - BLOOD TESTOSTERONE DECREASED [None]
  - BONE MARROW DISORDER [None]
  - CAUSTIC INJURY [None]
  - DEAFNESS [None]
  - DYSGEUSIA [None]
  - EJACULATION DISORDER [None]
  - ERECTILE DYSFUNCTION [None]
  - GASTROINTESTINAL NEOPLASM [None]
  - HAIR GROWTH ABNORMAL [None]
  - LOSS OF CONSCIOUSNESS [None]
  - LUNG NEOPLASM [None]
  - MEDICATION ERROR [None]
  - MEMORY IMPAIRMENT [None]
  - MUSCULOSKELETAL CHEST PAIN [None]
  - PENILE PAIN [None]
  - PITUITARY TUMOUR BENIGN [None]
  - SENSORY LOSS [None]
  - TUMOUR HAEMORRHAGE [None]
